FAERS Safety Report 16710341 (Version 1)
Quarter: 2019Q3

REPORT INFORMATION
  Report Type: Spontaneous
  Country: US (occurrence: US)
  Receive Date: 20190816
  Receipt Date: 20190816
  Transmission Date: 20191004
  Serious: No
  Sender: FDA-Public Use
  Company Number: US-PFIZER INC-2019350231

PATIENT
  Sex: Male

DRUGS (10)
  1. PITAVASTATIN. [Suspect]
     Active Substance: PITAVASTATIN CALCIUM
     Dosage: UNK
  2. SIMVASTATIN. [Suspect]
     Active Substance: SIMVASTATIN
     Dosage: UNK
  3. PRADAXA [Concomitant]
     Active Substance: DABIGATRAN ETEXILATE MESYLATE
     Dosage: UNK
  4. NIACIN. [Suspect]
     Active Substance: NIACIN
     Dosage: UNK
  5. DOBUTAMINE [Concomitant]
     Active Substance: DOBUTAMINE HYDROCHLORIDE
     Dosage: UNK
  6. IBUPROFEN. [Suspect]
     Active Substance: IBUPROFEN
     Dosage: UNK
  7. DIGOXIN. [Concomitant]
     Active Substance: DIGOXIN
     Dosage: UNK
  8. CIPRO [Suspect]
     Active Substance: CIPROFLOXACIN HYDROCHLORIDE
     Dosage: UNK
  9. ROSUVASTATIN. [Suspect]
     Active Substance: ROSUVASTATIN
     Dosage: UNK
  10. PRAVASTATIN. [Suspect]
     Active Substance: PRAVASTATIN
     Dosage: UNK

REACTIONS (1)
  - Drug hypersensitivity [Unknown]
